APPROVED DRUG PRODUCT: NEOMYCIN SULFATE-TRIAMCINOLONE ACETONIDE
Active Ingredient: NEOMYCIN SULFATE; TRIAMCINOLONE ACETONIDE
Strength: EQ 3.5MG BASE/GM;0.1%
Dosage Form/Route: OINTMENT;TOPICAL
Application: A062608 | Product #001
Applicant: E FOUGERA DIV ALTANA INC
Approved: May 23, 1986 | RLD: No | RS: No | Type: DISCN